FAERS Safety Report 12435250 (Version 1)
Quarter: 2016Q2

REPORT INFORMATION
  Report Type: Spontaneous
  Country: CA (occurrence: CA)
  Receive Date: 20160603
  Receipt Date: 20160603
  Transmission Date: 20160815
  Serious: Yes (Other)
  Sender: FDA-Public Use
  Company Number: CA-TEVA-664044USA

PATIENT
  Age: 19 Year
  Sex: Female

DRUGS (1)
  1. PLAN B [Suspect]
     Active Substance: LEVONORGESTREL
     Indication: POST COITAL CONTRACEPTION
     Route: 065
     Dates: start: 20160519, end: 20160519

REACTIONS (3)
  - Vaginal haemorrhage [Not Recovered/Not Resolved]
  - Thrombosis [Unknown]
  - Metrorrhagia [Unknown]
